FAERS Safety Report 8095510-2 (Version None)
Quarter: 2012Q1

REPORT INFORMATION
  Report Type: 
  Country: None (occurrence: None)
  Receive Date: 20120129
  Receipt Date: 20111218
  Transmission Date: 20120608
  Serious: No
  Sender: FDA-Public Use
  Company Number: US-ABBOTT-11P-163-0884349-00

PATIENT
  Age: 56 Year
  Sex: Male

DRUGS (6)
  1. LISINOPRIL [Concomitant]
     Indication: PRODUCT USED FOR UNKNOWN INDICATION
  2. LISINOPRIL [Concomitant]
  3. HUMIRA [Suspect]
     Indication: PSORIATIC ARTHROPATHY
     Dates: start: 20110601
  4. HUMIRA [Suspect]
     Dates: start: 20111124
  5. DIAZEPAM [Concomitant]
     Indication: ANXIETY
     Dosage: 5 MG IN THE AM, 10 MG IN THE PM
  6. LASIX [Concomitant]
     Indication: PRODUCT USED FOR UNKNOWN INDICATION
     Dosage: HAS TAKEN LESS THAN 5 TABLETS
     Dates: start: 20110701

REACTIONS (3)
  - SWELLING [None]
  - PYREXIA [None]
  - WEIGHT INCREASED [None]
